FAERS Safety Report 12297127 (Version 1)
Quarter: 2016Q2

REPORT INFORMATION
  Report Type: Spontaneous
  Country: GB (occurrence: GB)
  Receive Date: 20160422
  Receipt Date: 20160422
  Transmission Date: 20160815
  Serious: Yes (Hospitalization)
  Sender: FDA-Public Use
  Company Number: GB-PURDUE PHARMA-GBR-2016-0035461

PATIENT
  Age: 90 Year
  Sex: Female

DRUGS (7)
  1. ADALAT [Concomitant]
     Active Substance: NIFEDIPINE
  2. PARACETAMOL [Concomitant]
     Active Substance: ACETAMINOPHEN
  3. BUTRANS [Suspect]
     Active Substance: BUPRENORPHINE
     Indication: PAIN
     Dosage: 5 MCG, Q1H
     Route: 062
     Dates: start: 20150909, end: 20150911
  4. RANITIDINE. [Concomitant]
     Active Substance: RANITIDINE
  5. LISINOPRIL. [Concomitant]
     Active Substance: LISINOPRIL
  6. BISOPROLOL [Concomitant]
     Active Substance: BISOPROLOL
  7. KENALOG [Concomitant]
     Active Substance: TRIAMCINOLONE ACETONIDE

REACTIONS (3)
  - Atrial fibrillation [Unknown]
  - Feeling abnormal [Unknown]
  - Dizziness [Unknown]

NARRATIVE: CASE EVENT DATE: 201509
